FAERS Safety Report 23998614 (Version 1)
Quarter: 2024Q2

REPORT INFORMATION
  Report Type: Report from Study
  Country: US (occurrence: US)
  Receive Date: 20240621
  Receipt Date: 20240621
  Transmission Date: 20240716
  Serious: Yes (Other)
  Sender: FDA-Public Use
  Company Number: US-002147023-NVSC2024US128328

PATIENT
  Sex: Male

DRUGS (1)
  1. ENTRESTO [Suspect]
     Active Substance: SACUBITRIL\VALSARTAN
     Indication: Product used for unknown indication
     Dosage: UNK, UNKNOWN
     Route: 065

REACTIONS (8)
  - Atrial fibrillation [Unknown]
  - Myocardial infarction [Unknown]
  - Syncope [Unknown]
  - Cardiac dysfunction [Unknown]
  - Adverse drug reaction [Unknown]
  - Dizziness [Unknown]
  - Cardiac valve disease [Unknown]
  - Fall [Unknown]
